FAERS Safety Report 4764442-7 (Version None)
Quarter: 2005Q3

REPORT INFORMATION
  Report Type: 
  Country: None (occurrence: None)
  Receive Date: 20050906
  Receipt Date: 20050823
  Transmission Date: 20060218
  Serious: Yes (Other)
  Sender: FDA-Public Use
  Company Number: US_0501111344

PATIENT
  Age: 28 Year
  Sex: Male

DRUGS (12)
  1. ZYPREXA [Suspect]
     Indication: BIPOLAR DISORDER
     Dosage: 10 MG/1DAY
  2. LITHOBID [Concomitant]
  3. CHOLESTEROL [Concomitant]
  4. HDL, HIGH-DENSITY LIPOPROTEINS [Concomitant]
  5. TRIGLYCERIDES [Concomitant]
  6. LOW-DENSITY LIPROPROTEINS/UNME/UNMEASURABLE [Concomitant]
  7. THYROID STIMULATING HORMONE (TSH) [Concomitant]
  8. GLUCOSE, FASTING [Concomitant]
  9. GLUCOSE, SERUM [Concomitant]
  10. BLOOD PRESSURE [Concomitant]
  11. HEMOGLOBIN A1C [Concomitant]
  12. LDH CHOLESTEROL [Concomitant]

REACTIONS (11)
  - AMNESIA [None]
  - DIABETES MELLITUS INADEQUATE CONTROL [None]
  - DIABETES MELLITUS NON-INSULIN-DEPENDENT [None]
  - DYSARTHRIA [None]
  - HYPERLIPIDAEMIA [None]
  - HYPERTENSION [None]
  - HYPERTRIGLYCERIDAEMIA [None]
  - JOINT SWELLING [None]
  - METABOLIC SYNDROME [None]
  - OBESITY [None]
  - TREATMENT NONCOMPLIANCE [None]
